FAERS Safety Report 12894137 (Version 1)
Quarter: 2016Q4

REPORT INFORMATION
  Report Type: Report from Study
  Country: None (occurrence: VE)
  Receive Date: 20161028
  Receipt Date: 20161028
  Transmission Date: 20170207
  Serious: Yes (Death)
  Sender: FDA-Public Use
  Company Number: VE-ABBVIE-16P-178-1763604-00

PATIENT
  Age: 61 Year
  Sex: Male

DRUGS (1)
  1. ZEMPLAR [Suspect]
     Active Substance: PARICALCITOL
     Indication: NEPHROPATHY
     Route: 042
     Dates: end: 20161006

REACTIONS (1)
  - Hypertension [Fatal]

NARRATIVE: CASE EVENT DATE: 20161006
